FAERS Safety Report 10210548 (Version 1)
Quarter: 2014Q2

REPORT INFORMATION
  Report Type: Spontaneous
  Country: US (occurrence: None)
  Receive Date: 20140529
  Receipt Date: 20140529
  Transmission Date: 20141212
  Serious: No
  Sender: FDA-Public Use
  Company Number: None

PATIENT
  Age: 56 Year
  Sex: Female
  Weight: 0 kg

DRUGS (1)
  1. ERIVEDGE [Suspect]
     Indication: SKIN CANCER
     Route: 048
     Dates: start: 20140313, end: 20140527

REACTIONS (6)
  - Arthralgia [None]
  - Myalgia [None]
  - Muscle spasms [None]
  - Weight decreased [None]
  - Fatigue [None]
  - Asthenia [None]
